FAERS Safety Report 4582691-8 (Version None)
Quarter: 2005Q1

REPORT INFORMATION
  Report Type: 
  Country: None (occurrence: None)
  Receive Date: 20050215
  Receipt Date: 20050207
  Transmission Date: 20050727
  Serious: Yes (Hospitalization)
  Sender: FDA-Public Use
  Company Number: US-GLAXOSMITHKLINE-A0544180A

PATIENT
  Age: 65 Year
  Sex: Female
  Weight: 86.4 kg

DRUGS (4)
  1. CITRUCEL CAPLETS [Suspect]
     Indication: CONSTIPATION
     Route: 048
     Dates: start: 19930101
  2. RESERPINE [Concomitant]
     Route: 048
  3. ZOCOR [Concomitant]
  4. DIOVAN [Concomitant]
     Route: 048

REACTIONS (6)
  - ABDOMINAL PAIN [None]
  - BILIARY NEOPLASM [None]
  - DIVERTICULITIS INTESTINAL HAEMORRHAGIC [None]
  - GASTROINTESTINAL INFECTION [None]
  - PYREXIA [None]
  - RECTAL HAEMORRHAGE [None]
